FAERS Safety Report 17206639 (Version 1)
Quarter: 2019Q4

REPORT INFORMATION
  Report Type: Spontaneous
  Country: US (occurrence: US)
  Receive Date: 20191227
  Receipt Date: 20191227
  Transmission Date: 20200122
  Serious: No
  Sender: FDA-Public Use
  Company Number: US-TEVA-2019-US-1158339

PATIENT
  Sex: Female

DRUGS (1)
  1. AJOVY [Suspect]
     Active Substance: FREMANEZUMAB-VFRM
     Route: 065

REACTIONS (6)
  - Injection site swelling [Unknown]
  - Insomnia [Unknown]
  - Irritability [Unknown]
  - Emotional disorder [Unknown]
  - Injection site pruritus [Unknown]
  - Sensitive skin [Unknown]
